FAERS Safety Report 14198438 (Version 1)
Quarter: 2017Q4

REPORT INFORMATION
  Report Type: Spontaneous
  Country: AT (occurrence: AT)
  Receive Date: 20171117
  Receipt Date: 20171117
  Transmission Date: 20180321
  Serious: Yes (Life-Threatening, Other)
  Sender: FDA-Public Use
  Company Number: AT-INGENUS PHARMACEUTICALS, LLC-INF201711-000552

PATIENT
  Age: 14 Year
  Sex: Male

DRUGS (14)
  1. ETOPOSIDE. [Suspect]
     Active Substance: ETOPOSIDE
  2. DESMOPRESSIN [Concomitant]
     Active Substance: DESMOPRESSIN
  3. PACLITAXEL. [Concomitant]
     Active Substance: PACLITAXEL
  4. BUDESONIDE. [Concomitant]
     Active Substance: BUDESONIDE
  5. CISPLATIN. [Concomitant]
     Active Substance: CISPLATIN
  6. DEFIBROTIDE [Concomitant]
     Active Substance: DEFIBROTIDE (BOVINE)
  7. URSODESOXYCHOLATE [Concomitant]
  8. SPIRONOLACTONE. [Concomitant]
     Active Substance: SPIRONOLACTONE
  9. GEMCITABINE [Concomitant]
     Active Substance: GEMCITABINE\GEMCITABINE HYDROCHLORIDE
  10. OXALIPLATIN. [Concomitant]
     Active Substance: OXALIPLATIN
  11. ETOPOSIDE. [Suspect]
     Active Substance: ETOPOSIDE
     Indication: INTRACRANIAL GERM CELL TUMOUR
  12. IFOSFAMIDE. [Concomitant]
     Active Substance: IFOSFAMIDE
  13. CARBOPLATIN. [Suspect]
     Active Substance: CARBOPLATIN
     Indication: INTRACRANIAL GERM CELL TUMOUR
  14. FUROSEMIDE. [Concomitant]
     Active Substance: FUROSEMIDE
     Dosage: 2-3 MG/KG/DAY

REACTIONS (11)
  - Cholestasis [Recovered/Resolved]
  - Toxicity to various agents [Recovered/Resolved]
  - Jaundice [Recovered/Resolved]
  - Abdominal pain upper [Recovered/Resolved]
  - Product use in unapproved indication [Unknown]
  - Pancytopenia [Recovered/Resolved]
  - Thrombocytopenia [Recovered/Resolved]
  - Hepatomegaly [Recovered/Resolved]
  - Venoocclusive liver disease [Recovered/Resolved]
  - Ascites [Recovered/Resolved]
  - Hyperbilirubinaemia [Recovered/Resolved]
